FAERS Safety Report 11988692 (Version 2)
Quarter: 2016Q1

REPORT INFORMATION
  Report Type: Report from Study
  Country: PR (occurrence: PR)
  Receive Date: 20160202
  Receipt Date: 20160218
  Transmission Date: 20160526
  Serious: Yes (Hospitalization)
  Sender: FDA-Public Use
  Company Number: PR-BAYER-2016-018731

PATIENT
  Age: 45 Year
  Sex: Female

DRUGS (2)
  1. ADEMPAS [Suspect]
     Active Substance: RIOCIGUAT
     Indication: PULMONARY ARTERIAL HYPERTENSION
     Dosage: 1.5 MG, TID
     Route: 048
     Dates: start: 20140505, end: 20160202
  2. ADEMPAS [Suspect]
     Active Substance: RIOCIGUAT
     Indication: PULMONARY ARTERIAL HYPERTENSION
     Dosage: UNK

REACTIONS (4)
  - Therapy cessation [None]
  - Drug interaction [None]
  - Tachycardia [None]
  - Chest pain [None]

NARRATIVE: CASE EVENT DATE: 20160118
